FAERS Safety Report 19025285 (Version 4)
Quarter: 2023Q1

REPORT INFORMATION
  Report Type: Spontaneous
  Country: CA (occurrence: CA)
  Receive Date: 20210318
  Receipt Date: 20230124
  Transmission Date: 20230418
  Serious: Yes (Hospitalization, Other)
  Sender: FDA-Public Use
  Company Number: CA-BOEHRINGERINGELHEIM-2021-BI-090400

PATIENT
  Age: 60 Year
  Sex: Male

DRUGS (12)
  1. ATROVENT [Suspect]
     Active Substance: IPRATROPIUM BROMIDE
     Indication: Product used for unknown indication
     Dosage: 2.0 DOSAGE FORMS
     Route: 055
  2. ATROVENT [Suspect]
     Active Substance: IPRATROPIUM BROMIDE
     Route: 055
  3. SPIRIVA [Suspect]
     Active Substance: TIOTROPIUM BROMIDE MONOHYDRATE
     Indication: Asthma
     Dosage: 2 DOSAGE FORMS
     Route: 055
  4. PREDNISONE [Suspect]
     Active Substance: PREDNISONE
     Indication: Product used for unknown indication
  5. PREDNISONE [Suspect]
     Active Substance: PREDNISONE
  6. BUDESONIDE\FORMOTEROL FUMARATE [Suspect]
     Active Substance: BUDESONIDE\FORMOTEROL FUMARATE
     Indication: Asthma
     Route: 055
  7. MEPOLIZUMAB [Suspect]
     Active Substance: MEPOLIZUMAB
     Indication: Asthma
     Route: 042
  8. MEPOLIZUMAB [Suspect]
     Active Substance: MEPOLIZUMAB
     Route: 042
  9. VENTOLIN [Suspect]
     Active Substance: ALBUTEROL SULFATE
     Indication: Asthma
  10. SYMBICORT [Suspect]
     Active Substance: BUDESONIDE\FORMOTEROL FUMARATE DIHYDRATE
     Indication: Asthma
     Dosage: POWDER
     Route: 055
  11. CALCIUM CARBONATE [Concomitant]
     Active Substance: CALCIUM CARBONATE
     Indication: Product used for unknown indication
  12. ERGOCALCIFEROL\VITAMIN D [Concomitant]
     Active Substance: ERGOCALCIFEROL\VITAMIN D
     Indication: Product used for unknown indication

REACTIONS (21)
  - Anxiety [Unknown]
  - Aspergillus infection [Unknown]
  - Asthenia [Unknown]
  - Asthma [Unknown]
  - Depression [Unknown]
  - Drug ineffective [Unknown]
  - Dyspnoea [Unknown]
  - Emotional disorder [Unknown]
  - Feeling abnormal [Unknown]
  - Frustration tolerance decreased [Unknown]
  - Influenza like illness [Unknown]
  - Insomnia [Unknown]
  - Lower respiratory tract congestion [Unknown]
  - Malaise [Unknown]
  - Mood swings [Unknown]
  - Obstruction [Unknown]
  - Pneumothorax [Unknown]
  - Pruritus [Unknown]
  - Respiratory symptom [Unknown]
  - Stress [Unknown]
  - Weight decreased [Unknown]
